FAERS Safety Report 4929281-2 (Version None)
Quarter: 2006Q1

REPORT INFORMATION
  Report Type: 
  Country: None (occurrence: None)
  Receive Date: 20060223
  Receipt Date: 20060131
  Transmission Date: 20060701
  Serious: Yes (Death)
  Sender: FDA-Public Use
  Company Number: US200601005526

PATIENT

DRUGS (5)
  1. ZYPREXA [Suspect]
     Indication: MANIA
     Dosage: SEE IMAGE
     Route: 048
     Dates: start: 20030501, end: 20030701
  2. ZYPREXA [Suspect]
     Indication: MANIA
     Dosage: SEE IMAGE
     Route: 048
     Dates: start: 20031201
  3. PROZAC [Suspect]
     Indication: BIPOLAR DISORDER
     Dosage: 20 MG, EACH MORNING, ORAL
     Route: 048
     Dates: start: 20031201
  4. WELLBUTRIN SR [Concomitant]
  5. FLUOXETINE /N/A/ (FLUOXETINE) [Concomitant]

REACTIONS (11)
  - BIPOLAR DISORDER [None]
  - DEPRESSION [None]
  - DRUG WITHDRAWAL SYNDROME [None]
  - EMOTIONAL DISORDER [None]
  - FLAT AFFECT [None]
  - GUN SHOT WOUND [None]
  - INTENTIONAL SELF-INJURY [None]
  - MANIA [None]
  - MENTAL IMPAIRMENT [None]
  - SOCIAL AVOIDANT BEHAVIOUR [None]
  - SOMNOLENCE [None]
